FAERS Safety Report 25385588 (Version 1)
Quarter: 2025Q2

REPORT INFORMATION
  Report Type: Spontaneous
  Country: TR (occurrence: TR)
  Receive Date: 20250602
  Receipt Date: 20250602
  Transmission Date: 20250716
  Serious: Yes (Other)
  Sender: GALPHARM INTERNATIONAL
  Company Number: TR-PERRIGO-25TR006682

PATIENT
  Age: 35 Year
  Sex: Female
  Weight: 60 kg

DRUGS (1)
  1. ELLA [Suspect]
     Active Substance: ULIPRISTAL ACETATE
     Indication: Post coital contraception
     Route: 048
     Dates: start: 20250408, end: 20250408

REACTIONS (6)
  - Ectopic pregnancy under hormonal contraception [Recovered/Resolved]
  - Abortion [Recovered/Resolved]
  - Heavy menstrual bleeding [Recovered/Resolved]
  - Drug ineffective [Recovered/Resolved]
  - Rosacea [Recovered/Resolved]
  - Maternal exposure during pregnancy [Recovered/Resolved]

NARRATIVE: CASE EVENT DATE: 20250506
